FAERS Safety Report 8497991-9 (Version None)
Quarter: 2012Q3

REPORT INFORMATION
  Report Type: 
  Country: None (occurrence: None)
  Receive Date: 20120709
  Receipt Date: 20120618
  Transmission Date: 20120928
  Serious: No
  Sender: FDA-Public Use
  Company Number: US-AMGEN-USASP2012037970

PATIENT
  Age: 49 Year
  Sex: Female

DRUGS (1)
  1. ENBREL [Suspect]
     Indication: RHEUMATOID ARTHRITIS
     Dosage: 50 MG, QWK
     Dates: start: 20120511, end: 20120518

REACTIONS (13)
  - GROIN PAIN [None]
  - HYPOAESTHESIA [None]
  - RASH GENERALISED [None]
  - MUSCULAR WEAKNESS [None]
  - HEPATIC ENZYME INCREASED [None]
  - INJECTION SITE ERYTHEMA [None]
  - INJECTION SITE HAEMATOMA [None]
  - INJECTION SITE SWELLING [None]
  - HEADACHE [None]
  - PAIN [None]
  - FATIGUE [None]
  - PAIN IN EXTREMITY [None]
  - INJECTION SITE PAIN [None]
